FAERS Safety Report 10379390 (Version 1)
Quarter: 2014Q3

REPORT INFORMATION
  Report Type: Spontaneous
  Country: US (occurrence: None)
  Receive Date: 20140811
  Receipt Date: 20140811
  Transmission Date: 20150326
  Serious: Yes (Disabling)
  Sender: FDA-Public Use
  Company Number: None

PATIENT
  Age: 43 Year
  Sex: Female
  Weight: 61.69 kg

DRUGS (2)
  1. CYMBALTA [Suspect]
     Active Substance: DULOXETINE HYDROCHLORIDE
     Indication: ANXIETY
     Dosage: 1 PILL ONCE DAILY TAKEN BY MOUTH
     Route: 048
  2. CYMBALTA [Suspect]
     Active Substance: DULOXETINE HYDROCHLORIDE
     Indication: DEPRESSION
     Dosage: 1 PILL ONCE DAILY TAKEN BY MOUTH
     Route: 048

REACTIONS (13)
  - No therapeutic response [None]
  - Dizziness [None]
  - Weight increased [None]
  - Anger [None]
  - Nightmare [None]
  - Lethargy [None]
  - Increased appetite [None]
  - Drug withdrawal syndrome [None]
  - Nausea [None]
  - Headache [None]
  - Pain [None]
  - Loss of libido [None]
  - Dependence [None]

NARRATIVE: CASE EVENT DATE: 20140808
